FAERS Safety Report 10762766 (Version 5)
Quarter: 2015Q2

REPORT INFORMATION
  Report Type: Spontaneous
  Country: DK (occurrence: DK)
  Receive Date: 20150204
  Receipt Date: 20150602
  Transmission Date: 20150821
  Serious: Yes (Hospitalization, Other)
  Sender: FDA-Public Use
  Company Number: PHHY2015DK010865

PATIENT
  Age: 25 Year
  Sex: Female

DRUGS (4)
  1. FEMINIL MITE [Suspect]
     Active Substance: CYPROTERONE ACETATE\ETHINYL ESTRADIOL
     Indication: CONTRACEPTION
  2. FEMINIL MITE [Suspect]
     Active Substance: CYPROTERONE ACETATE\ETHINYL ESTRADIOL
     Indication: CONTRACEPTION
  3. FEMINIL MITE [Suspect]
     Active Substance: CYPROTERONE ACETATE\ETHINYL ESTRADIOL
     Indication: ACNE
     Dosage: UNK
     Route: 048
     Dates: start: 20110526
  4. VREYA [Suspect]
     Active Substance: CYPROTERONE ACETATE\ETHINYL ESTRADIOL
     Indication: ACNE
     Route: 048

REACTIONS (17)
  - Breast mass [Unknown]
  - Tenderness [Unknown]
  - Fibromyalgia [Unknown]
  - Pain [Unknown]
  - Sensory disturbance [Unknown]
  - Immune system disorder [Unknown]
  - Memory impairment [Unknown]
  - Thrombosis [Unknown]
  - Urinary incontinence [Unknown]
  - Fatigue [Unknown]
  - Contusion [Unknown]
  - Peripheral swelling [Not Recovered/Not Resolved]
  - Chest pain [Unknown]
  - Dyspnoea [Unknown]
  - Stress [Unknown]
  - Faecal incontinence [Unknown]
  - Pain in extremity [Not Recovered/Not Resolved]

NARRATIVE: CASE EVENT DATE: 20111013
